FAERS Safety Report 19614836 (Version 1)
Quarter: 2021Q3

REPORT INFORMATION
  Report Type: Spontaneous
  Country: IT (occurrence: IT)
  Receive Date: 20210727
  Receipt Date: 20210727
  Transmission Date: 20211014
  Serious: Yes (Other)
  Sender: FDA-Public Use
  Company Number: IT-MYLANLABS-2021M1044653

PATIENT
  Age: 3 Year
  Sex: Male

DRUGS (3)
  1. PREDNISONE. [Suspect]
     Active Substance: PREDNISONE
     Indication: KAWASAKI^S DISEASE
     Dosage: 2 MILLIGRAM/KILOGRAM, QD
     Route: 048
  2. ACETYLSALICYLIC ACID [Suspect]
     Active Substance: ASPIRIN
     Indication: KAWASAKI^S DISEASE
     Dosage: 60 MILLIGRAM/KILOGRAM, QD (Q8H)
     Route: 065
  3. METHYLPREDNISOLONE. [Suspect]
     Active Substance: METHYLPREDNISOLONE
     Indication: KAWASAKI^S DISEASE
     Dosage: 30 MILLIGRAM/KILOGRAM, QD
     Route: 042

REACTIONS (1)
  - Drug ineffective [Unknown]
